FAERS Safety Report 17969087 (Version 1)
Quarter: 2020Q3

REPORT INFORMATION
  Report Type: Spontaneous
  Country: US (occurrence: US)
  Receive Date: 20200701
  Receipt Date: 20200701
  Transmission Date: 20201103
  Serious: No
  Sender: FDA-Public Use
  Company Number: US-PFM-2019-10120

PATIENT
  Sex: Male
  Weight: 11.34 kg

DRUGS (1)
  1. HEMANGEOL [Suspect]
     Active Substance: PROPRANOLOL HYDROCHLORIDE
     Indication: INFANTILE HAEMANGIOMA
     Dosage: 4.3 ML, BID (2/DAY)
     Route: 065
     Dates: start: 20190320

REACTIONS (3)
  - Diarrhoea [Recovered/Resolved]
  - Off label use [Unknown]
  - Product administered to patient of inappropriate age [Unknown]
